FAERS Safety Report 12784555 (Version 1)
Quarter: 2016Q3

REPORT INFORMATION
  Report Type: Report from Study
  Country: US (occurrence: US)
  Receive Date: 20160927
  Receipt Date: 20160927
  Transmission Date: 20161109
  Serious: Yes (Hospitalization)
  Sender: FDA-Public Use
  Company Number: US-ASTELLAS-2016US027117

PATIENT
  Age: 91 Year
  Sex: Male

DRUGS (24)
  1. ATENOLOL. [Concomitant]
     Active Substance: ATENOLOL
     Indication: HYPERTENSION
     Route: 048
     Dates: start: 2002
  2. EXELOM [Concomitant]
     Active Substance: RIVASTIGMINE TARTRATE
     Indication: AMNESIA
     Route: 065
     Dates: start: 2010
  3. DHEA [Concomitant]
     Active Substance: PRASTERONE
     Route: 048
  4. XARELTO [Concomitant]
     Active Substance: RIVAROXABAN
     Indication: ANTICOAGULANT THERAPY
     Route: 048
     Dates: start: 20130226
  5. LASIX [Concomitant]
     Active Substance: FUROSEMIDE
     Indication: HYPERTENSION
     Route: 048
     Dates: start: 20140725
  6. STOOL SOFTENER [Concomitant]
     Active Substance: DOCUSATE CALCIUM
     Indication: CONSTIPATION
     Dosage: UNK UNK, AS NEEDED
     Route: 048
     Dates: start: 20121011
  7. BENICAR [Concomitant]
     Active Substance: OLMESARTAN MEDOXOMIL
     Indication: HYPERTENSION
     Route: 048
     Dates: start: 20141114
  8. JALYN [Concomitant]
     Active Substance: DUTASTERIDE\TAMSULOSIN HYDROCHLORIDE
     Indication: PROSTATOMEGALY
     Route: 048
     Dates: start: 201107
  9. POTASSIUM CHLORIDE. [Concomitant]
     Active Substance: POTASSIUM CHLORIDE
     Indication: SUPPLEMENTATION THERAPY
     Route: 048
     Dates: start: 20130107
  10. BETHANECHOL [Concomitant]
     Active Substance: BETHANECHOL
     Indication: POLLAKIURIA
     Dosage: 1 TABLET BID AM AND PM, 1/2 TABLET BEDTIME + LUNCH
     Route: 048
     Dates: start: 20140814
  11. SOTALOL. [Concomitant]
     Active Substance: SOTALOL
     Indication: ATRIAL FIBRILLATION
     Dosage: 1 TABLET AM, 1/2 TABLET PM, 80 MG, TWICE DAILY
     Route: 048
     Dates: start: 201407
  12. HESC-RPE [Suspect]
     Active Substance: INVESTIGATIONAL PRODUCT
     Indication: AGE-RELATED MACULAR DEGENERATION
     Dosage: 50000 CELLS TOTAL DOSE
     Route: 031
     Dates: start: 20120414, end: 20120414
  13. VITAMIN B12 [Concomitant]
     Active Substance: CYANOCOBALAMIN
     Indication: VITAMIN SUPPLEMENTATION
     Route: 048
     Dates: start: 2010
  14. ATENOLOL. [Concomitant]
     Active Substance: ATENOLOL
     Route: 048
  15. CRESTOR [Concomitant]
     Active Substance: ROSUVASTATIN CALCIUM
     Indication: HYPERCHOLESTEROLAEMIA
     Route: 048
     Dates: start: 2007
  16. EXFORGE HCT [Concomitant]
     Active Substance: AMLODIPINE BESYLATE\HYDROCHLOROTHIAZIDE\VALSARTAN
     Indication: HYPERTENSION
     Dosage: 5/160/12.5 MG, ONCE DAILY
     Route: 048
     Dates: start: 20130307
  17. NAMENDA [Concomitant]
     Active Substance: MEMANTINE HYDROCHLORIDE
     Indication: AMNESIA
     Route: 048
     Dates: start: 20140725
  18. TURMERIC                           /01079601/ [Concomitant]
     Active Substance: TURMERIC
     Indication: NUTRITIONAL SUPPLEMENTATION
     Route: 048
     Dates: start: 20140725
  19. TACROLIMUS. [Suspect]
     Active Substance: TACROLIMUS
     Indication: IMMUNOSUPPRESSION
     Dosage: UNK, UNKNOWN FREQ.
     Route: 065
     Dates: start: 20120406, end: 20120515
  20. DHEA [Concomitant]
     Active Substance: PRASTERONE
     Indication: AMNESIA
     Route: 048
     Dates: start: 201107
  21. ZYLET [Concomitant]
     Active Substance: LOTEPREDNOL ETABONATE\TOBRAMYCIN
     Indication: EYE HAEMORRHAGE
     Route: 047
     Dates: start: 20131108
  22. MYCOPHENOLATE MOFETIL. [Suspect]
     Active Substance: MYCOPHENOLATE MOFETIL
     Indication: IMMUNOSUPPRESSION
     Dosage: UNK, UNKNOWN FREQ.
     Route: 065
     Dates: start: 20120406, end: 20120410
  23. POTASSIUM CHLORIDE. [Concomitant]
     Active Substance: POTASSIUM CHLORIDE
     Route: 048
     Dates: start: 20130418
  24. ASPIRIN. [Concomitant]
     Active Substance: ASPIRIN
     Indication: ARTERIOSCLEROSIS
     Route: 048
     Dates: start: 20140725

REACTIONS (3)
  - Unresponsive to stimuli [Recovered/Resolved]
  - Syncope [Recovered/Resolved]
  - Syncope [Recovered/Resolved]

NARRATIVE: CASE EVENT DATE: 20150303
